FAERS Safety Report 19725843 (Version 1)
Quarter: 2021Q3

REPORT INFORMATION
  Report Type: Spontaneous
  Country: US (occurrence: US)
  Receive Date: 20210819
  Receipt Date: 20210819
  Transmission Date: 20211014
  Serious: No
  Sender: FDA-Public Use
  Company Number: None

PATIENT
  Age: 66 Year
  Sex: Female
  Weight: 52.16 kg

DRUGS (1)
  1. RECLAST [Suspect]
     Active Substance: ZOLEDRONIC ACID
     Indication: OSTEOPOROSIS
     Dosage: 1 YEARLY INTO A VEIN
     Dates: start: 20210104

REACTIONS (3)
  - Arthritis [None]
  - Movement disorder [None]
  - Pain [None]

NARRATIVE: CASE EVENT DATE: 20210104
